FAERS Safety Report 21750017 (Version 1)
Quarter: 2022Q4

REPORT INFORMATION
  Report Type: Spontaneous
  Country: FR (occurrence: FR)
  Receive Date: 20221219
  Receipt Date: 20221219
  Transmission Date: 20230113
  Serious: Yes (Other)
  Sender: FDA-Public Use
  Company Number: None

PATIENT
  Age: 78 Year
  Sex: Male

DRUGS (3)
  1. TUKYSA [Suspect]
     Active Substance: TUCATINIB
     Indication: Breast cancer male
     Dosage: UNK
     Route: 048
     Dates: start: 20220914, end: 202211
  2. CAPECITABINE [Suspect]
     Active Substance: CAPECITABINE
     Indication: Breast cancer male
     Dosage: 300 MG MORNING AND EVENING FOR 14 DAYS, THEN A 7-DAY BREAK
     Route: 048
     Dates: start: 20220909, end: 202211
  3. CAPECITABINE [Suspect]
     Active Substance: CAPECITABINE
     Indication: Breast cancer male
     Dosage: 1,500 MG MORNING AND EVENING 14 DAYS OF TREATMENT FOLLOWED BY A 7-DAY BREAK
     Route: 048
     Dates: start: 20220909, end: 202211

REACTIONS (2)
  - Hepatic cytolysis [Recovered/Resolved]
  - Rash maculo-papular [Recovered/Resolved]

NARRATIVE: CASE EVENT DATE: 20220921
